FAERS Safety Report 8925970 (Version 1)
Quarter: 2012Q4

REPORT INFORMATION
  Report Type: 
  Country: NZ (occurrence: NZ)
  Receive Date: 20121126
  Receipt Date: 20121126
  Transmission Date: 20130627
  Serious: Yes (Hospitalization)
  Sender: FDA-Public Use
  Company Number: NZ-B.I. PHARMACEUTICALS,INC./RIDGEFIELD-2012-AU-01893AU

PATIENT
  Age: 60 Year
  Sex: Male

DRUGS (2)
  1. PRADAXA [Suspect]
     Indication: ATRIAL FIBRILLATION
     Dosage: 300 mg
  2. PRADAXA [Suspect]
     Dosage: 220 mg

REACTIONS (4)
  - Hypertension [Unknown]
  - Epistaxis [Unknown]
  - Rectal haemorrhage [Unknown]
  - Renal failure [Unknown]
